FAERS Safety Report 9450117 (Version 1)
Quarter: 2013Q3

REPORT INFORMATION
  Report Type: Spontaneous
  Country: FR (occurrence: FR)
  Receive Date: 20130809
  Receipt Date: 20130809
  Transmission Date: 20140515
  Serious: Yes (Hospitalization)
  Sender: FDA-Public Use
  Company Number: FR-PFIZER INC-2013228345

PATIENT
  Age: 29 Year
  Sex: Female

DRUGS (2)
  1. ADVIL [Suspect]
     Indication: PYREXIA
     Dosage: 200 MG, 2X/DAY
     Route: 048
     Dates: start: 20130701, end: 20130702
  2. ADVIL [Suspect]
     Indication: CHILLS

REACTIONS (2)
  - Renal abscess [Recovered/Resolved with Sequelae]
  - Condition aggravated [Recovered/Resolved with Sequelae]
